FAERS Safety Report 10870889 (Version 1)
Quarter: 2015Q1

REPORT INFORMATION
  Report Type: Spontaneous
  Country: US (occurrence: US)
  Receive Date: 20150226
  Receipt Date: 20150226
  Transmission Date: 20150721
  Serious: Yes (Other)
  Sender: FDA-Public Use
  Company Number: US-JNJFOC-20150218991

PATIENT

DRUGS (1)
  1. IBUPROFEN. [Suspect]
     Active Substance: IBUPROFEN
     Indication: PATENT DUCTUS ARTERIOSUS
     Route: 065

REACTIONS (5)
  - Nephropathy toxic [Unknown]
  - Product use issue [Unknown]
  - Renal disorder [Unknown]
  - Retinopathy of prematurity [Unknown]
  - Bronchopulmonary dysplasia [Unknown]
